FAERS Safety Report 10724206 (Version 2)
Quarter: 2015Q1

REPORT INFORMATION
  Report Type: Spontaneous
  Country: US (occurrence: US)
  Receive Date: 20150120
  Receipt Date: 20150123
  Transmission Date: 20150721
  Serious: Yes (Other)
  Sender: FDA-Public Use
  Company Number: US-TEVA-534925USA

PATIENT
  Sex: Female

DRUGS (1)
  1. CLONAZEPAM. [Suspect]
     Active Substance: CLONAZEPAM
     Indication: SEIZURE
     Route: 065
     Dates: start: 2005

REACTIONS (18)
  - Blepharospasm [Unknown]
  - Myalgia [Unknown]
  - Dyspnoea [Unknown]
  - Hypoaesthesia [Unknown]
  - Oropharyngeal pain [Unknown]
  - Dry mouth [Unknown]
  - Palpitations [Unknown]
  - Alopecia [Unknown]
  - Tooth disorder [Unknown]
  - Muscular weakness [Unknown]
  - Rash [Unknown]
  - Choking [Unknown]
  - Pulmonary congestion [Unknown]
  - Hirsutism [Unknown]
  - Tongue coated [Unknown]
  - Weight decreased [Unknown]
  - Salivary hypersecretion [Unknown]
  - Gingival swelling [Unknown]

NARRATIVE: CASE EVENT DATE: 2005
